FAERS Safety Report 9371958 (Version 1)
Quarter: 2013Q2

REPORT INFORMATION
  Report Type: Report from Study
  Country: US (occurrence: US)
  Receive Date: 20130627
  Receipt Date: 20130627
  Transmission Date: 20140414
  Serious: Yes (Other)
  Sender: FDA-Public Use
  Company Number: US-MYLANLABS-2012S1011166

PATIENT
  Age: 53 Year
  Sex: Male

DRUGS (6)
  1. CLOZAPINE TABLETS [Suspect]
     Route: 048
     Dates: end: 20120528
  2. CLOZAPINE TABLETS [Suspect]
     Route: 048
     Dates: start: 20120605, end: 20120608
  3. CLOZAPINE TABLETS [Suspect]
     Dosage: 100MG QAM, 300MG HS
     Route: 048
     Dates: end: 20120528
  4. CLOZAPINE TABLETS [Suspect]
     Dosage: 100MG QAM, 300MG HS
     Route: 048
     Dates: start: 20120605, end: 20120608
  5. CLOZAPINE TABLETS [Suspect]
     Route: 048
     Dates: start: 20120608, end: 20120628
  6. CLOZAPINE TABLETS [Suspect]
     Route: 048
     Dates: start: 20120628

REACTIONS (1)
  - Granulocytopenia [Recovered/Resolved]
